FAERS Safety Report 17301420 (Version 1)
Quarter: 2020Q1

REPORT INFORMATION
  Report Type: Spontaneous
  Country: US (occurrence: US)
  Receive Date: 20200106
  Receipt Date: 20200106
  Transmission Date: 20200409
  Serious: Yes (Hospitalization)
  Sender: FDA-Public Use
  Company Number: None

PATIENT
  Age: 17 Year
  Sex: Male

DRUGS (7)
  1. IPRATROPIUM [Concomitant]
     Active Substance: IPRATROPIUM
  2. AZITHROMYCIN ANHYDROUS. [Concomitant]
     Active Substance: AZITHROMYCIN ANHYDROUS
  3. ALBUTEROL. [Concomitant]
     Active Substance: ALBUTEROL
  4. FLOVENT HFA [Concomitant]
     Active Substance: FLUTICASONE PROPIONATE
  5. PREDNISOLONE SLN 15MG/5 ML [Suspect]
     Active Substance: PREDNISOLONE
     Indication: RESPIRATORY DISORDER
     Route: 048
     Dates: start: 20191125
  6. PROAIR HFA [Concomitant]
     Active Substance: ALBUTEROL SULFATE
  7. PREDNISONE. [Concomitant]
     Active Substance: PREDNISONE

REACTIONS (2)
  - Dyspnoea [None]
  - Lung disorder [None]

NARRATIVE: CASE EVENT DATE: 20191224
